FAERS Safety Report 9274748 (Version 1)
Quarter: 2013Q2

REPORT INFORMATION
  Report Type: Spontaneous
  Country: US (occurrence: None)
  Receive Date: 20130430
  Receipt Date: 20130430
  Transmission Date: 20140414
  Serious: No
  Sender: FDA-Public Use
  Company Number: None

PATIENT
  Age: 76 Year
  Sex: Female
  Weight: 71.22 kg

DRUGS (1)
  1. RECLAST [Suspect]

REACTIONS (7)
  - Abdominal pain [None]
  - Diarrhoea [None]
  - Arthralgia [None]
  - Myalgia [None]
  - Gait disturbance [None]
  - Fatigue [None]
  - Chills [None]
